FAERS Safety Report 5663606-8 (Version None)
Quarter: 2008Q1

REPORT INFORMATION
  Report Type: 
  Country: None (occurrence: None)
  Receive Date: 20080307
  Receipt Date: 20080229
  Transmission Date: 20080703
  Serious: Yes (Life-Threatening, Hospitalization)
  Sender: FDA-Public Use
  Company Number: 2008SP004433

PATIENT
  Age: 49 Year
  Sex: Male
  Weight: 124 kg

DRUGS (15)
  1. TEMODAR [Suspect]
     Indication: MALIGNANT OLIGODENDROGLIOMA
     Dosage: 300 MG;
     Dates: start: 20080205, end: 20080209
  2. DECADRON [Suspect]
     Indication: DRUG USE FOR UNKNOWN INDICATION
  3. PANTOPRAZOLE (CON.) [Concomitant]
  4. HYDROCODONE WITH [Concomitant]
  5. ACETAMINOPHEN (CON.) [Concomitant]
  6. WARFARIN (CON.) [Concomitant]
  7. COLACE (CON.) [Concomitant]
  8. KEPPRA (CON.) [Concomitant]
  9. PHENOBARBITAL (CON.) [Concomitant]
  10. ROPINIROLE (CON.) [Concomitant]
  11. CRESTOR (CON.) [Concomitant]
  12. NIASPAN (CON.) [Concomitant]
  13. CLARINEX (CON.) [Concomitant]
  14. MAGNESIUM OXIDE (CON.) [Concomitant]
  15. BACTRIM DS (CON.) [Concomitant]

REACTIONS (6)
  - CELLULITIS [None]
  - HYPOTENSION [None]
  - MENTAL STATUS CHANGES [None]
  - SEPSIS [None]
  - SKIN LESION [None]
  - TACHYCARDIA [None]
